FAERS Safety Report 24883455 (Version 1)
Quarter: 2025Q1

REPORT INFORMATION
  Report Type: Spontaneous
  Country: US (occurrence: None)
  Receive Date: 20250123
  Receipt Date: 20250123
  Transmission Date: 20250409
  Serious: Yes (Other)
  Sender: FDA-CTU
  Company Number: None

PATIENT
  Age: 9 Year
  Sex: Male
  Weight: 24.75 kg

DRUGS (2)
  1. MUCINEX CHILDRENS FREEFROM MULTI-SYMPTOM COLD AND STUFFY NOSE [Suspect]
     Active Substance: DEXTROMETHORPHAN HYDROBROMIDE\GUAIFENESIN\PHENYLEPHRINE HYDROCHLORIDE
     Indication: Nasopharyngitis
     Dosage: OTHER QUANTITY : 5 ML;?FREQUENCY : EVERY 4 HOURS;?
     Route: 048
     Dates: start: 20221201, end: 20221201
  2. ALBUTEROL [Concomitant]
     Active Substance: ALBUTEROL

REACTIONS (2)
  - Urticaria [None]
  - Dyspnoea [None]

NARRATIVE: CASE EVENT DATE: 20221201
